FAERS Safety Report 5316879-5 (Version None)
Quarter: 2007Q2

REPORT INFORMATION
  Report Type: 
  Country: None (occurrence: None)
  Receive Date: 20070504
  Receipt Date: 20070502
  Transmission Date: 20071010
  Serious: Yes (Hospitalization)
  Sender: FDA-Public Use
  Company Number: US-GLAXOSMITHKLINE-A0649716A

PATIENT
  Age: 69 Year
  Sex: Male

DRUGS (5)
  1. COREG [Suspect]
     Dosage: 10MG PER DAY
     Route: 048
  2. PYRIDOXIN [Concomitant]
  3. DIOVAN [Concomitant]
  4. TRAZODONE HCL [Concomitant]
  5. DETROL LA [Concomitant]

REACTIONS (6)
  - BLOOD SODIUM DECREASED [None]
  - FATIGUE [None]
  - HERNIA [None]
  - INSOMNIA [None]
  - OEDEMA [None]
  - WEIGHT INCREASED [None]
